FAERS Safety Report 22592489 (Version 1)
Quarter: 2023Q2

REPORT INFORMATION
  Report Type: Spontaneous
  Country: CA (occurrence: None)
  Receive Date: 20230613
  Receipt Date: 20230613
  Transmission Date: 20230722
  Serious: Yes (Hospitalization, Other)
  Sender: FDA-Public Use
  Company Number: 2023A133650

PATIENT
  Sex: Male

DRUGS (5)
  1. QUETIAPINE FUMARATE [Suspect]
     Active Substance: QUETIAPINE FUMARATE
     Route: 048
  2. ABILIFY [Suspect]
     Active Substance: ARIPIPRAZOLE
  3. CLOZAPINE [Suspect]
     Active Substance: CLOZAPINE
     Dosage: 125.0MG UNKNOWN
     Route: 048
  4. OLANZAPINE [Suspect]
     Active Substance: OLANZAPINE
  5. RISPERIDONE [Suspect]
     Active Substance: RISPERIDONE

REACTIONS (6)
  - Delusional disorder, persecutory type [Unknown]
  - Depressed level of consciousness [Unknown]
  - Drug intolerance [Unknown]
  - Confusional state [Unknown]
  - Sedation [Unknown]
  - Drug ineffective [Unknown]
